FAERS Safety Report 13410059 (Version 2)
Quarter: 2017Q2

REPORT INFORMATION
  Report Type: Spontaneous
  Country: DM (occurrence: US)
  Receive Date: 20170406
  Receipt Date: 20170425
  Transmission Date: 20170830
  Serious: Yes (Other)
  Sender: FDA-Public Use
  Company Number: DM-PFIZER INC-2017144504

PATIENT
  Age: 38 Year
  Sex: Male

DRUGS (1)
  1. GEODON [Suspect]
     Active Substance: ZIPRASIDONE HYDROCHLORIDE\ZIPRASIDONE MESYLATE
     Dosage: 20 MG, UNK
     Route: 030

REACTIONS (1)
  - Kounis syndrome [Recovering/Resolving]
